FAERS Safety Report 21576011 (Version 2)
Quarter: 2022Q4

REPORT INFORMATION
  Report Type: Spontaneous
  Country: US (occurrence: US)
  Receive Date: 20221110
  Receipt Date: 20221212
  Transmission Date: 20230113
  Serious: No
  Sender: FDA-Public Use
  Company Number: US-PFIZER INC-PV202200095067

PATIENT
  Age: 9 Year
  Sex: Female

DRUGS (1)
  1. GENOTROPIN [Suspect]
     Active Substance: SOMATROPIN
     Dosage: UNK, 1X/DAY, ALTERNATE 1.8MG AND 2.0MG QOD 5 X WEEK

REACTIONS (5)
  - Breast pain [Unknown]
  - COVID-19 [Unknown]
  - Insulin-like growth factor increased [Unknown]
  - Injection site pain [Unknown]
  - Device leakage [Unknown]
